FAERS Safety Report 4300436-3 (Version None)
Quarter: 2004Q1

REPORT INFORMATION
  Report Type: 
  Country: None (occurrence: None)
  Receive Date: 20040218
  Receipt Date: 20040209
  Transmission Date: 20041129
  Serious: Yes (Other)
  Sender: FDA-Public Use
  Company Number: FR-SHR-04-021067

PATIENT
  Sex: Female

DRUGS (1)
  1. MIRENA [Suspect]
     Indication: CONTRACEPTION
     Dosage: 20 UG, CONT., INTRA-UTERINE
     Route: 015

REACTIONS (1)
  - MULTIPLE SCLEROSIS [None]
